FAERS Safety Report 4585703-0 (Version None)
Quarter: 2005Q1

REPORT INFORMATION
  Report Type: 
  Country: None (occurrence: None)
  Receive Date: 20050217
  Receipt Date: 20050207
  Transmission Date: 20050727
  Serious: Yes (Other)
  Sender: FDA-Public Use
  Company Number: PHBS2005BE02090

PATIENT
  Age: 66 Year
  Sex: Female

DRUGS (9)
  1. RADIO-THERAPY [Concomitant]
     Route: 065
     Dates: start: 20030101
  2. TAXOTERE [Concomitant]
     Route: 065
     Dates: start: 20030201
  3. IRESSA [Concomitant]
     Dates: start: 20031016
  4. ASAFLOW [Concomitant]
     Route: 065
  5. ADALAT [Concomitant]
     Route: 065
  6. OMNIBIONTA [Concomitant]
     Route: 065
  7. TOUXIUM [Concomitant]
     Route: 065
  8. DOLZAM [Concomitant]
     Route: 065
  9. ZOMETA [Suspect]
     Indication: METASTASES TO BONE
     Route: 042
     Dates: start: 20030101

REACTIONS (6)
  - BONE INFECTION [None]
  - HAEMORRHAGE [None]
  - OSTEONECROSIS [None]
  - PARAESTHESIA [None]
  - SEQUESTRECTOMY [None]
  - SURGERY [None]
